FAERS Safety Report 5824418-5 (Version None)
Quarter: 2008Q3

REPORT INFORMATION
  Report Type: 
  Country: None (occurrence: None)
  Receive Date: 20080728
  Receipt Date: 20080717
  Transmission Date: 20090109
  Serious: Yes (Other)
  Sender: FDA-Public Use
  Company Number: B0376811A

PATIENT
  Age: 57 Year
  Sex: Male

DRUGS (2)
  1. SEROXAT [Suspect]
     Indication: DEPRESSION
     Route: 065
     Dates: start: 20000214, end: 20030101
  2. PREDNISOLONE [Concomitant]
     Indication: COLITIS

REACTIONS (20)
  - ADVERSE DRUG REACTION [None]
  - AFFECTIVE DISORDER [None]
  - AGGRESSION [None]
  - AGITATION [None]
  - ANXIETY [None]
  - BRUXISM [None]
  - CHEST PAIN [None]
  - DEPRESSED MOOD [None]
  - DERMATILLOMANIA [None]
  - DISTURBANCE IN ATTENTION [None]
  - IRRITABILITY [None]
  - MALAISE [None]
  - MEMORY IMPAIRMENT [None]
  - MOOD SWINGS [None]
  - MUSCLE TWITCHING [None]
  - NERVOUSNESS [None]
  - PARANOIA [None]
  - SELF-INJURIOUS IDEATION [None]
  - SUICIDAL IDEATION [None]
  - WITHDRAWAL SYNDROME [None]
